FAERS Safety Report 13120905 (Version 3)
Quarter: 2017Q1

REPORT INFORMATION
  Report Type: Report from Study
  Country: JP (occurrence: JP)
  Receive Date: 20170117
  Receipt Date: 20170312
  Transmission Date: 20170428
  Serious: Yes (Death, Other)
  Sender: FDA-Public Use
  Company Number: PHJP2016JP035786

PATIENT
  Age: 60 Year
  Sex: Female

DRUGS (11)
  1. DAIPHEN [Concomitant]
     Active Substance: SULFAMETHOXAZOLE\TRIMETHOPRIM
     Indication: PROPHYLAXIS
     Dosage: 2 DF, UNK
     Route: 048
  2. FARYDAK [Suspect]
     Active Substance: PANOBINOSTAT
     Indication: PLASMA CELL MYELOMA
     Dosage: 10 MG, QD (1 DOSE PER CYCLE)
     Route: 048
     Dates: start: 20151026
  3. OXYCONTIN [Concomitant]
     Active Substance: OXYCODONE HYDROCHLORIDE
     Indication: PLASMA CELL MYELOMA
     Dosage: 10 MG, UNK
     Route: 048
  4. IRRADIATED PLATELET CONCENTRATE HLA, LEUKOCYT [Concomitant]
     Dosage: 1 UNK, UNK
     Route: 065
     Dates: start: 20151029, end: 20151029
  5. IRRADIATED PLATELET CONCENTRATE HLA, LEUKOCYT [Concomitant]
     Dosage: UNK
  6. TRICHLORMETHIAZIDE [Concomitant]
     Active Substance: TRICHLORMETHIAZIDE
     Indication: RENAL FAILURE
     Dosage: 1 MG, UNK
     Route: 048
     Dates: end: 20151031
  7. ACICLOVIR [Concomitant]
     Active Substance: ACYCLOVIR
     Indication: PROPHYLAXIS
     Dosage: 200 MG, UNK
     Dates: start: 20151028, end: 20151030
  8. IRRADIATED PLATELET CONCENTRATE HLA, LEUKOCYT [Concomitant]
     Dosage: 1 UNK, UNK
     Route: 065
     Dates: start: 20151031, end: 20151031
  9. DEXAMETHASONE. [Concomitant]
     Active Substance: DEXAMETHASONE
     Indication: PLASMA CELL MYELOMA
     Dosage: UNK
     Route: 065
     Dates: start: 20151026
  10. IRRADIATED PLATELET CONCENTRATE HLA, LEUKOCYT [Concomitant]
     Indication: PLASMA CELL MYELOMA
     Dosage: UNK, UNK
     Route: 065
     Dates: start: 20151027, end: 20151027
  11. BORTEZOMIB [Concomitant]
     Active Substance: BORTEZOMIB
     Indication: PLASMA CELL MYELOMA
     Dosage: 1.3 MG/M2, QW
     Route: 058
     Dates: start: 20151026

REACTIONS (6)
  - White blood cell count decreased [Unknown]
  - Diarrhoea [Recovering/Resolving]
  - Cardiac arrest [Unknown]
  - Vomiting [Recovered/Resolved]
  - Plasma cell myeloma [Fatal]
  - Malignant neoplasm progression [Fatal]

NARRATIVE: CASE EVENT DATE: 20151027
